FAERS Safety Report 8272708-1 (Version None)
Quarter: 2012Q2

REPORT INFORMATION
  Report Type: 
  Country: None (occurrence: None)
  Receive Date: 20120411
  Receipt Date: 20120319
  Transmission Date: 20120825
  Serious: Yes (Other)
  Sender: FDA-Public Use
  Company Number: FR-BAXTER-2012BAX000507

PATIENT
  Age: 30 Year
  Sex: Female

DRUGS (10)
  1. IFOSFAMIDE [Suspect]
     Dosage: 5 G/M2
     Route: 042
  2. DOXORUBICIN HCL [Suspect]
  3. CISPLATIN [Suspect]
     Route: 042
  4. NEUPOGEN [Concomitant]
     Indication: PROPHYLAXIS
     Route: 065
  5. ETOPOSIDE [Suspect]
  6. ONDANSETRON [Concomitant]
     Indication: PROPHYLAXIS OF NAUSEA AND VOMITING
  7. DOXORUBICIN HCL [Suspect]
     Route: 042
  8. UROMITEXAN 1 G/10 ML, SOLUTION INJECTABLE POUR PERFUSION EN FLACON [Concomitant]
     Indication: PROPHYLAXIS
  9. IFOSFAMIDE [Suspect]
     Dosage: 6 G/M2
  10. METOCLOPRAMIDE [Concomitant]
     Indication: PROPHYLAXIS OF NAUSEA AND VOMITING

REACTIONS (4)
  - MATERNAL EXPOSURE DURING PREGNANCY [None]
  - ALOPECIA [None]
  - PREMATURE DELIVERY [None]
  - NEUTROPENIA [None]
